FAERS Safety Report 21611776 (Version 1)
Quarter: 2022Q4

REPORT INFORMATION
  Report Type: Report from Study
  Country: US (occurrence: US)
  Receive Date: 20221117
  Receipt Date: 20221117
  Transmission Date: 20230113
  Serious: No
  Sender: FDA-Public Use
  Company Number: US-ABBVIE-4172913

PATIENT
  Age: 37 Year
  Sex: Female

DRUGS (3)
  1. SKYRIZI [Suspect]
     Active Substance: RISANKIZUMAB-RZAA
     Indication: Psoriasis
     Dosage: 150MG?ONCE AT WEEK 0
     Route: 058
     Dates: start: 20221004
  2. Moderna COVID-19 vaccine (Elasomeran) [Concomitant]
     Indication: COVID-19 immunisation
     Dosage: VACCINE
     Route: 030
  3. Moderna COVID-19 vaccine (Elasomeran) [Concomitant]
     Indication: COVID-19 immunisation
     Dosage: BOOSTER
     Route: 030

REACTIONS (6)
  - Fatigue [Unknown]
  - Burning sensation [Unknown]
  - Pruritus [Unknown]
  - Headache [Recovered/Resolved]
  - Chills [Unknown]
  - Pain [Unknown]

NARRATIVE: CASE EVENT DATE: 20221001
